FAERS Safety Report 9396289 (Version 1)
Quarter: 2013Q3

REPORT INFORMATION
  Report Type: Spontaneous
  Country: US (occurrence: CA)
  Receive Date: 20130701
  Receipt Date: 20130701
  Transmission Date: 20140515
  Serious: Yes (Other)
  Sender: FDA-Public Use
  Company Number: 2013036672

PATIENT
  Age: 85 Year
  Sex: Female

DRUGS (1)
  1. PRIVIGEN [Suspect]
     Route: 042

REACTIONS (3)
  - Delayed serologic transfusion reaction [None]
  - Coombs direct test positive [None]
  - Anti-erythrocyte antibody positive [None]
